FAERS Safety Report 21553973 (Version 1)
Quarter: 2022Q4

REPORT INFORMATION
  Report Type: Other
  Country: GB (occurrence: GB)
  Receive Date: 20221104
  Receipt Date: 20221104
  Transmission Date: 20230113
  Serious: No
  Sender: FDA-Public Use
  Company Number: GB-MHRA-MED-202210191758347460-TSYCV

PATIENT
  Age: 17 Year
  Sex: Female
  Weight: 62 kg

DRUGS (1)
  1. ETHINYL ESTRADIOL\LEVONORGESTREL [Suspect]
     Active Substance: ETHINYL ESTRADIOL\LEVONORGESTREL
     Indication: Dysmenorrhoea
     Dosage: 1 DOSAGE FORM, QD
     Route: 048
     Dates: start: 20180801, end: 20181101

REACTIONS (3)
  - Decidual cast [Recovered/Resolved]
  - Mental disorder [Unknown]
  - Intrusive thoughts [Unknown]

NARRATIVE: CASE EVENT DATE: 20180901
